FAERS Safety Report 4630783-7 (Version None)
Quarter: 2005Q2

REPORT INFORMATION
  Report Type: 
  Country: None (occurrence: None)
  Receive Date: 20050405
  Receipt Date: 20050405
  Transmission Date: 20051028
  Serious: No
  Sender: FDA-Public Use
  Company Number: None

PATIENT
  Age: 82 Year
  Sex: Male
  Weight: 63 kg

DRUGS (1)
  1. AVANDIA [Suspect]
     Indication: DIABETES MELLITUS
     Dosage: 4 MG   TWICE A DAY  OTHER
     Route: 050
     Dates: start: 20050222, end: 20050304

REACTIONS (1)
  - LIVER FUNCTION TEST ABNORMAL [None]
